FAERS Safety Report 22517971 (Version 2)
Quarter: 2024Q1

REPORT INFORMATION
  Report Type: Spontaneous
  Country: US (occurrence: US)
  Receive Date: 20230605
  Receipt Date: 20240206
  Transmission Date: 20240409
  Serious: No
  Sender: FDA-Public Use
  Company Number: US-SA-SAC20230602000229

PATIENT
  Age: 57 Year
  Sex: Female
  Weight: 66.67 kg

DRUGS (1)
  1. DUPIXENT [Suspect]
     Active Substance: DUPILUMAB
     Indication: Dermatitis atopic
     Dosage: 300MG, QOW
     Route: 058
     Dates: start: 201909

REACTIONS (2)
  - Ocular hyperaemia [Not Recovered/Not Resolved]
  - Dry eye [Unknown]
